FAERS Safety Report 9684799 (Version 3)
Quarter: 2016Q3

REPORT INFORMATION
  Report Type: Report from Study
  Country: BR (occurrence: BR)
  Receive Date: 20131112
  Receipt Date: 20160722
  Transmission Date: 20161109
  Serious: Yes (Hospitalization)
  Sender: FDA-Public Use
  Company Number: PHHY2013BR125769

PATIENT
  Age: 53 Year
  Sex: Female
  Weight: 55 kg

DRUGS (5)
  1. GILENYA [Suspect]
     Active Substance: FINGOLIMOD HYDROCHLORIDE
     Indication: MULTIPLE SCLEROSIS
     Dosage: 0.5 MG, QD
     Route: 048
     Dates: start: 201308
  2. SINVASTAMED [Concomitant]
     Indication: BLOOD CHOLESTEROL ABNORMAL
     Route: 065
  3. SINVASTAMED [Concomitant]
     Indication: BLOOD TRIGLYCERIDES ABNORMAL
  4. OMEGA 3 [Concomitant]
     Active Substance: OMEGA-3 FATTY ACIDS
     Indication: MULTIPLE SCLEROSIS
     Dosage: 1 MG, TID
     Route: 048
     Dates: start: 20090129
  5. Q10 [Concomitant]
     Indication: PRODUCT USED FOR UNKNOWN INDICATION
     Dosage: 3 U, QD
     Route: 048
     Dates: start: 20090129

REACTIONS (17)
  - Haemorrhagic stroke [Not Recovered/Not Resolved]
  - Confusional state [Unknown]
  - Ischaemic stroke [Not Recovered/Not Resolved]
  - Thyroid disorder [Unknown]
  - Effusion [Unknown]
  - Limb discomfort [Not Recovered/Not Resolved]
  - Fatigue [Unknown]
  - Dysgraphia [Recovering/Resolving]
  - Gait disturbance [Recovering/Resolving]
  - Balance disorder [Unknown]
  - Weight decreased [Unknown]
  - Cognitive disorder [Not Recovered/Not Resolved]
  - Memory impairment [Recovering/Resolving]
  - Speech disorder [Recovering/Resolving]
  - Dysphonia [Recovering/Resolving]
  - Facial asymmetry [Recovered/Resolved]
  - Stress [Unknown]

NARRATIVE: CASE EVENT DATE: 201308
